FAERS Safety Report 24864949 (Version 2)
Quarter: 2025Q1

REPORT INFORMATION
  Report Type: Spontaneous
  Country: US (occurrence: US)
  Receive Date: 20250121
  Receipt Date: 20250219
  Transmission Date: 20250409
  Serious: Yes (Other)
  Sender: SANOFI AVENTIS
  Company Number: US-SA-2025SA017685

PATIENT
  Sex: Male
  Weight: 75.91 kg

DRUGS (11)
  1. NEXVIAZYME [Suspect]
     Active Substance: AVALGLUCOSIDASE ALFA-NGPT
     Indication: Glycogen storage disease type II
     Dosage: 1500 MG, QOW
     Route: 042
     Dates: start: 20220921
  2. STERILE WATER [Concomitant]
     Active Substance: WATER
  3. EPINEPHRINE [Concomitant]
     Active Substance: EPINEPHRINE
  4. VITAMIN B [Concomitant]
     Active Substance: VITAMIN B
  5. HYDROCHLOROTHIAZIDE [Concomitant]
     Active Substance: HYDROCHLOROTHIAZIDE
  6. SODIUM CHLORIDE [Concomitant]
     Active Substance: SODIUM CHLORIDE
  7. IPRATROPIUM BROMIDE [Concomitant]
     Active Substance: IPRATROPIUM BROMIDE
  8. DEXTROSE [Concomitant]
     Active Substance: DEXTROSE MONOHYDRATE
  9. LISINOPRIL [Concomitant]
     Active Substance: LISINOPRIL
  10. VITAMIN D3 [Concomitant]
     Active Substance: CHOLECALCIFEROL
  11. L-ALANINE [Concomitant]

REACTIONS (1)
  - Prostate cancer [Unknown]
